FAERS Safety Report 16528164 (Version 1)
Quarter: 2019Q3

REPORT INFORMATION
  Report Type: Spontaneous
  Country: DE (occurrence: DE)
  Receive Date: 20190704
  Receipt Date: 20190704
  Transmission Date: 20191004
  Serious: Yes (Hospitalization)
  Sender: FDA-Public Use
  Company Number: DE-TEVA-2019-DE-1073171

PATIENT
  Age: 59 Year
  Sex: Female

DRUGS (2)
  1. DIAZEPAM. [Suspect]
     Active Substance: DIAZEPAM
     Dosage: 6 GTT, NEED
  2. PREGABALIN. [Suspect]
     Active Substance: PREGABALIN
     Dosage: 25 MG, 1-1-1-0

REACTIONS (2)
  - Fall [Unknown]
  - Fracture [Unknown]
